FAERS Safety Report 9006096 (Version 2)
Quarter: 2013Q2

REPORT INFORMATION
  Report Type: Spontaneous
  Country: IT (occurrence: IT)
  Receive Date: 20130109
  Receipt Date: 20130402
  Transmission Date: 20140414
  Serious: Yes (Other)
  Sender: FDA-Public Use
  Company Number: PHHY2013IT001682

PATIENT
  Sex: Female

DRUGS (1)
  1. ZOMETA [Suspect]
     Indication: BREAST CANCER STAGE IV
     Dosage: 4 MG, MONTHLY
     Route: 042
     Dates: start: 20020101, end: 20081201

REACTIONS (1)
  - Osteonecrosis of jaw [Recovering/Resolving]
